FAERS Safety Report 11556503 (Version 6)
Quarter: 2018Q3

REPORT INFORMATION
  Report Type: Spontaneous
  Country: US (occurrence: US)
  Receive Date: 20150925
  Receipt Date: 20180717
  Transmission Date: 20181010
  Serious: Yes (Hospitalization, Other)
  Sender: FDA-Public Use
  Company Number: US-DSJP-DSU-2015-129601

PATIENT

DRUGS (2)
  1. BENICAR [Suspect]
     Active Substance: OLMESARTAN MEDOXOMIL
     Indication: HYPERTENSION
     Dosage: 40 MG, QD
     Route: 048
     Dates: start: 200409, end: 20150619
  2. ASPIRIN                            /00002701/ [Concomitant]
     Active Substance: ASPIRIN
     Indication: COAGULOPATHY
     Dosage: 325 MG, QD

REACTIONS (11)
  - Diverticulum intestinal [Unknown]
  - Acute kidney injury [Unknown]
  - Retching [Unknown]
  - Pyrexia [Unknown]
  - Sprue-like enteropathy [Unknown]
  - Diarrhoea haemorrhagic [Unknown]
  - Hypotension [Unknown]
  - Small intestinal obstruction [Unknown]
  - Gastrointestinal wall thickening [Unknown]
  - Depression [Unknown]
  - Umbilical hernia [Unknown]

NARRATIVE: CASE EVENT DATE: 20080703
